FAERS Safety Report 18087746 (Version 6)
Quarter: 2025Q1

REPORT INFORMATION
  Report Type: Report from Study
  Country: DE (occurrence: DE)
  Receive Date: 20200729
  Receipt Date: 20250331
  Transmission Date: 20250409
  Serious: No
  Sender: TAKEDA
  Company Number: DE-SHIRE-DE201738166

PATIENT
  Age: 56 Year
  Sex: Male

DRUGS (16)
  1. TEDUGLUTIDE [Suspect]
     Active Substance: TEDUGLUTIDE
     Indication: Short-bowel syndrome
     Dosage: 3.890 MILLIGRAM, QD
     Dates: start: 20141119
  2. TEDUGLUTIDE [Suspect]
     Active Substance: TEDUGLUTIDE
  3. TEDUGLUTIDE [Suspect]
     Active Substance: TEDUGLUTIDE
  4. TEDUGLUTIDE [Suspect]
     Active Substance: TEDUGLUTIDE
  5. ELECTROLYTES NOS\MINERALS [Concomitant]
     Active Substance: ELECTROLYTES NOS\MINERALS
     Indication: Trace element deficiency
     Dosage: 1 DOSAGE FORM, QD
  6. CERNEVIT [Concomitant]
     Active Substance: VITAMINS
     Indication: Vitamin supplementation
     Dosage: 1 DOSAGE FORM, QD
  7. TEDUGLUTIDE [Concomitant]
     Active Substance: TEDUGLUTIDE
     Indication: Short-bowel syndrome
     Dosage: 2 DOSAGE FORM, QD
  8. LOPERAMIDE [Concomitant]
     Active Substance: LOPERAMIDE
     Indication: Diarrhoea
     Dosage: 2 MILLIGRAM, TID
  9. CALCIUM\CHOLECALCIFEROL [Concomitant]
     Active Substance: CALCIUM\CHOLECALCIFEROL
     Indication: Hypocalcaemia
     Dosage: UNK UNK, BID
     Dates: start: 201507
  10. CALCIUM\CHOLECALCIFEROL [Concomitant]
     Active Substance: CALCIUM\CHOLECALCIFEROL
     Indication: Supplementation therapy
  11. PANCRELIPASE [Concomitant]
     Active Substance: PANCRELIPASE
     Indication: Pancreatic enzyme abnormality
     Dosage: 40000 INTERNATIONAL UNIT, BID
  12. ASPIRIN [Concomitant]
     Active Substance: ASPIRIN
     Indication: Hypercoagulation
     Dosage: 100 MILLIGRAM, QD
     Dates: start: 201111
  13. PANTOPRAZOLE SODIUM [Concomitant]
     Active Substance: PANTOPRAZOLE SODIUM
     Indication: Prophylaxis
     Dosage: 40 MILLIGRAM, BID
     Dates: start: 201111
  14. CHOLESTYRAMINE [Concomitant]
     Active Substance: CHOLESTYRAMINE
     Indication: Diarrhoea
     Dosage: 1 INTERNATIONAL UNIT, TID
     Dates: start: 2014
  15. Omniflora [Concomitant]
     Indication: Prophylaxis
     Dosage: UNK UNK, BID
  16. CHOLESTYRAMINE [Concomitant]
     Active Substance: CHOLESTYRAMINE
     Indication: Diarrhoea
     Dosage: 4 GRAM, TID
     Dates: start: 201703, end: 201806

REACTIONS (2)
  - Gastric polyps [Recovered/Resolved]
  - Duodenal polyp [Recovered/Resolved]

NARRATIVE: CASE EVENT DATE: 20170321
